FAERS Safety Report 4732432-6 (Version None)
Quarter: 2005Q3

REPORT INFORMATION
  Report Type: 
  Country: None (occurrence: None)
  Receive Date: 20050801
  Receipt Date: 20050719
  Transmission Date: 20060218
  Serious: Yes (Life-Threatening, Hospitalization)
  Sender: FDA-Public Use
  Company Number: 200511381BWH

PATIENT

DRUGS (1)
  1. TRASYLOL [Suspect]
     Indication: CORONARY ARTERY SURGERY
     Dosage: INTRAVENOUS
     Route: 042
     Dates: end: 20040101

REACTIONS (5)
  - CARDIAC ARREST [None]
  - CORONARY BYPASS THROMBOSIS [None]
  - ELECTROCARDIOGRAM CHANGE [None]
  - ELECTROCARDIOGRAM QRS COMPLEX PROLONGED [None]
  - POST PROCEDURAL COMPLICATION [None]
